FAERS Safety Report 7738179-6 (Version None)
Quarter: 2011Q3

REPORT INFORMATION
  Report Type: 
  Country: None (occurrence: None)
  Receive Date: 20110906
  Receipt Date: 20110822
  Transmission Date: 20111222
  Serious: Yes (Hospitalization)
  Sender: FDA-Public Use
  Company Number: 1000022681

PATIENT
  Age: 75 Year
  Sex: Male
  Weight: 62 kg

DRUGS (10)
  1. ROFLUMILAST (ROFLUMILAST) (TABLETS) [Suspect]
     Indication: CHRONIC OBSTRUCTIVE PULMONARY DISEASE
     Dosage: 500 MCG (500 MCG, 1 IN 1)
     Dates: start: 20110606, end: 20110101
  2. SPIRIVA [Concomitant]
  3. BERODUAL (IPRATROPIUM, FENOTEROL FUMARATE) [Concomitant]
  4. BISOPROLOL FUMARATE [Concomitant]
  5. VIVINOX (DEPHENHYDRAMINE) [Concomitant]
  6. SYMBICORT [Concomitant]
  7. JODTHYROX (LEVOTHYROXINE) [Concomitant]
  8. TRILEPTAL [Concomitant]
  9. LENDORM [Concomitant]
  10. TAMSULOSIN HCL [Concomitant]

REACTIONS (11)
  - HYPOPHAGIA [None]
  - BUNDLE BRANCH BLOCK LEFT [None]
  - ANXIETY [None]
  - CONDITION AGGRAVATED [None]
  - BLOOD PRESSURE INCREASED [None]
  - CYANOSIS [None]
  - CONSTIPATION [None]
  - RECTAL HAEMORRHAGE [None]
  - HEART RATE INCREASED [None]
  - VENTRICULAR EXTRASYSTOLES [None]
  - CHRONIC OBSTRUCTIVE PULMONARY DISEASE [None]
